FAERS Safety Report 6071033-7 (Version None)
Quarter: 2009Q1

REPORT INFORMATION
  Report Type: 
  Country: None (occurrence: None)
  Receive Date: 20090209
  Receipt Date: 20090206
  Transmission Date: 20090719
  Serious: Yes (Other)
  Sender: FDA-Public Use
  Company Number: B0557924A

PATIENT
  Age: 27 Year
  Sex: Female

DRUGS (2)
  1. RELENZA [Suspect]
     Indication: INFLUENZA
     Dosage: 10MG TWICE PER DAY
     Route: 055
     Dates: start: 20090202, end: 20090202
  2. CEFZON [Concomitant]
     Route: 048

REACTIONS (2)
  - HYPOAESTHESIA [None]
  - SYNCOPE [None]
